FAERS Safety Report 5079591-6 (Version None)
Quarter: 2006Q3

REPORT INFORMATION
  Report Type: 
  Country: None (occurrence: None)
  Receive Date: 20060720
  Receipt Date: 20051110
  Transmission Date: 20061208
  Serious: Yes (Other)
  Sender: FDA-Public Use
  Company Number: 2005092313

PATIENT
  Sex: Female

DRUGS (1)
  1. CELEBREX [Suspect]
     Indication: ARTHRITIS
     Dosage: ORAL
     Route: 048
     Dates: start: 20051001

REACTIONS (7)
  - ARTHRITIS [None]
  - CONDITION AGGRAVATED [None]
  - DYSPHAGIA [None]
  - FAECES DISCOLOURED [None]
  - FALL [None]
  - GASTRIC ULCER [None]
  - PAIN [None]
